FAERS Safety Report 6930230-6 (Version None)
Quarter: 2010Q3

REPORT INFORMATION
  Report Type: 
  Country: None (occurrence: None)
  Receive Date: 20100817
  Receipt Date: 20100817
  Transmission Date: 20110219
  Serious: Yes (Other)
  Sender: FDA-Public Use
  Company Number: None

PATIENT
  Sex: Female
  Weight: 19.5 kg

DRUGS (1)
  1. CETIRIZINE HCL [Suspect]
     Indication: HYPERSENSITIVITY
     Dosage: 1/2 TABLESPOON 1 PER DAY
     Dates: start: 20100620, end: 20100715

REACTIONS (9)
  - AGGRESSION [None]
  - AGITATION [None]
  - CONFUSIONAL STATE [None]
  - INITIAL INSOMNIA [None]
  - INSOMNIA [None]
  - MOOD ALTERED [None]
  - MUSCULOSKELETAL STIFFNESS [None]
  - PSYCHOMOTOR HYPERACTIVITY [None]
  - SLEEP TERROR [None]
